FAERS Safety Report 8148855 (Version 3)
Quarter: 2013Q2

REPORT INFORMATION
  Report Type: Spontaneous
  Country: US (occurrence: US)
  Receive Date: 20110922
  Receipt Date: 20130510
  Transmission Date: 20140414
  Serious: No
  Sender: FDA-Public Use
  Company Number: US-ASTRAZENECA-2011SE21462

PATIENT
  Age: 47 Year
  Sex: Male

DRUGS (2)
  1. SEROQUEL [Suspect]
     Indication: BIPOLAR DISORDER
     Route: 048
  2. SEROQUEL [Suspect]
     Indication: BIPOLAR DISORDER
     Route: 048

REACTIONS (7)
  - Feeling abnormal [Unknown]
  - Pneumonia [Unknown]
  - Malaise [Unknown]
  - Pharyngeal abscess [Unknown]
  - Anger [Unknown]
  - Confusional state [Unknown]
  - Drug dose omission [Unknown]
